FAERS Safety Report 16011290 (Version 2)
Quarter: 2019Q3

REPORT INFORMATION
  Report Type: Spontaneous
  Country: DE (occurrence: DE)
  Receive Date: 20190227
  Receipt Date: 20190826
  Transmission Date: 20191004
  Serious: Yes (Other)
  Sender: FDA-Public Use
  Company Number: PHHY2019DE044447

PATIENT
  Age: 67 Year
  Sex: Female
  Weight: 70 kg

DRUGS (6)
  1. SALBUTAMOL [Concomitant]
     Active Substance: ALBUTEROL
     Indication: PRODUCT USED FOR UNKNOWN INDICATION
     Dosage: UNK UNK, PRN
     Route: 065
  2. POVIDONE-IODINE. [Suspect]
     Active Substance: POVIDONE-IODINE
     Indication: PRODUCT USED FOR UNKNOWN INDICATION
     Dosage: UNK
     Route: 065
  3. CETIRIZIN [Concomitant]
     Active Substance: CETIRIZINE HYDROCHLORIDE
     Indication: PRODUCT USED FOR UNKNOWN INDICATION
     Dosage: UNK UNK, PRN
     Route: 065
  4. DOXYCYCLIN - 1 A PHARMA [Suspect]
     Active Substance: DOXYCYCLINE
     Indication: BRONCHITIS
     Dosage: 1 DF, QD
     Route: 065
  5. IBUPROFENE [Concomitant]
     Active Substance: IBUPROFEN
     Indication: PRODUCT USED FOR UNKNOWN INDICATION
     Dosage: UNK
     Route: 065
  6. L-THYROX [Concomitant]
     Active Substance: LEVOTHYROXINE SODIUM
     Indication: PRODUCT USED FOR UNKNOWN INDICATION
     Dosage: UNK UNK,
     Route: 065

REACTIONS (4)
  - Vulvovaginal inflammation [Recovered/Resolved]
  - Hypersensitivity [Recovered/Resolved]
  - Drug intolerance [Unknown]
  - Vulvovaginal pruritus [Recovered/Resolved]
